FAERS Safety Report 7365421-6 (Version None)
Quarter: 2011Q1

REPORT INFORMATION
  Report Type: 
  Country: None (occurrence: None)
  Receive Date: 20110310
  Receipt Date: 20110218
  Transmission Date: 20110831
  Serious: Yes (Hospitalization)
  Sender: FDA-Public Use
  Company Number: JP-20110009

PATIENT
  Age: 66 Year
  Sex: Female

DRUGS (6)
  1. (LIPIODOL ULTRA FLUIDE) (ETHIODIZED OIL) [Suspect]
     Indication: REGIONAL CHEMOTHERAPY
     Dosage: 10 ML (10 ML, 1 IN 1 D) INTRA-ARTERIAL
     Route: 013
     Dates: start: 20100428, end: 20100428
  2. (VEEN-3G)(GLUCOSE ADDEED ACEITIC ACID) (GLUCOSE ADDEED ACEITIC ACID) [Concomitant]
  3. (DEXART) (DEXAMETHASONE) ((DEXAMETHASONE)) [Concomitant]
  4. (SOLASET F)  (SOLASET F) (SOLASET F) [Concomitant]
  5. (IAA -CALL) (CISPLATIN) (CISPLATIN) [Concomitant]
  6. (KYTRIL) (GRANISETRON)(GRANISETRON) [Concomitant]

REACTIONS (5)
  - LIVER ABSCESS [None]
  - PYREXIA [None]
  - NAUSEA [None]
  - ABDOMINAL PAIN UPPER [None]
  - CHILLS [None]
